FAERS Safety Report 5032471-4 (Version None)
Quarter: 2006Q2

REPORT INFORMATION
  Report Type: 
  Country: None (occurrence: None)
  Receive Date: 20060621
  Receipt Date: 20060621
  Transmission Date: 20061013
  Serious: Yes (Other)
  Sender: FDA-Public Use
  Company Number: None

PATIENT
  Age: 83 Year
  Sex: Female
  Weight: 58.9676 kg

DRUGS (2)
  1. REMICADE 600MG IV Q MONTH [Suspect]
     Indication: RHEUMATOID ARTHRITIS
     Dosage: 600 MG Q MONTH IV
     Route: 042
     Dates: start: 20050201, end: 20060601
  2. METHOTREXATE [Suspect]
     Indication: RHEUMATOID ARTHRITIS
     Dosage: 20MG Q WK PO
     Route: 048
     Dates: start: 20040101, end: 20060601

REACTIONS (1)
  - THROAT CANCER [None]
